FAERS Safety Report 6149750-X (Version None)
Quarter: 2009Q2

REPORT INFORMATION
  Report Type: 
  Country: None (occurrence: None)
  Receive Date: 20090409
  Receipt Date: 20090407
  Transmission Date: 20091009
  Serious: Yes (Life-Threatening, Hospitalization, Other)
  Sender: FDA-Public Use
  Company Number: PHHY2009ES13020

PATIENT
  Age: 29 Year
  Sex: Female

DRUGS (5)
  1. VOLTAREN [Suspect]
     Indication: MIGRAINE
     Dosage: 75 MG/DAY
     Route: 030
     Dates: start: 20090115
  2. NOLOTIL [Interacting]
     Indication: MIGRAINE
     Dosage: 575 MG
     Route: 048
     Dates: start: 20090113, end: 20090123
  3. MAXALT [Interacting]
     Indication: MIGRAINE
     Dosage: 10 MG
     Route: 048
     Dates: start: 20090122, end: 20090125
  4. FLURPAX [Interacting]
     Indication: MIGRAINE
     Dosage: 5 MG/DAY
     Route: 048
     Dates: start: 20081029, end: 20090123
  5. ZOLMITRIPTAN [Interacting]
     Indication: MIGRAINE
     Dosage: UNK
     Route: 045
     Dates: start: 20090122, end: 20090123

REACTIONS (4)
  - DRUG INTERACTION [None]
  - GLOMERULONEPHRITIS [None]
  - HYPERTENSION [None]
  - RENAL FAILURE ACUTE [None]
